FAERS Safety Report 19605290 (Version 2)
Quarter: 2022Q1

REPORT INFORMATION
  Report Type: Spontaneous
  Country: CA (occurrence: CA)
  Receive Date: 20210723
  Receipt Date: 20220216
  Transmission Date: 20220423
  Serious: Yes (Hospitalization, Other)
  Sender: FDA-Public Use
  Company Number: CA-GLAXOSMITHKLINE-CACH2021AMR045301

PATIENT
  Age: 58 Year
  Sex: Female

DRUGS (6)
  1. IBUPROFEN [Suspect]
     Active Substance: IBUPROFEN
     Indication: Frostbite
     Dosage: 600 MG, 1 EVERY 6 HOURS
     Route: 048
  2. NAPROXEN [Suspect]
     Active Substance: NAPROXEN
     Indication: Product used for unknown indication
     Dosage: UNK
  3. ILOPROST [Suspect]
     Active Substance: ILOPROST
     Indication: Frostbite
     Dosage: UNK
     Route: 042
  4. CHLORHEXIDINE [Concomitant]
     Active Substance: CHLORHEXIDINE
     Indication: Frostbite
     Dosage: UNK
     Route: 061
  5. DIF-TET-ALL (DIPHTHERIA TOXOID ADSORBED/TETANUS TOXOID ADSORBED) [Concomitant]
     Indication: Product used for unknown indication
     Dosage: UNK
     Route: 065
  6. ISOPROPYL ALCOHOL [Concomitant]
     Active Substance: ISOPROPYL ALCOHOL
     Indication: Frostbite
     Dosage: UNK
     Route: 061

REACTIONS (1)
  - Duodenal ulcer perforation [Unknown]
